FAERS Safety Report 5565967-7 (Version None)
Quarter: 2007Q4

REPORT INFORMATION
  Report Type: 
  Country: None (occurrence: None)
  Receive Date: 20071219
  Receipt Date: 20071212
  Transmission Date: 20080405
  Serious: Yes (Life-Threatening)
  Sender: FDA-Public Use
  Company Number: RU-BAYER-200718092GPV

PATIENT
  Age: 10 Year
  Sex: Male

DRUGS (1)
  1. ULTRAVIST 300 [Suspect]
     Indication: UROGRAM
     Dosage: TOTAL DAILY DOSE: 20 ML
     Route: 040
     Dates: start: 20071122, end: 20071122

REACTIONS (7)
  - ANAPHYLACTIC SHOCK [None]
  - BLOOD PRESSURE DECREASED [None]
  - FLUSHING [None]
  - LOSS OF CONSCIOUSNESS [None]
  - PALLOR [None]
  - TACHYCARDIA [None]
  - VOMITING [None]
